FAERS Safety Report 22193289 (Version 1)
Quarter: 2023Q2

REPORT INFORMATION
  Report Type: Spontaneous
  Country: US (occurrence: None)
  Receive Date: 20230410
  Receipt Date: 20230410
  Transmission Date: 20230722
  Serious: Yes (Disabling)
  Sender: FDA-Public Use
  Company Number: None

PATIENT
  Age: 74 Year
  Sex: Female
  Weight: 105.69 kg

DRUGS (2)
  1. LITHIUM [Suspect]
     Active Substance: LITHIUM
     Indication: Bipolar disorder
     Dosage: FREQUENCY : 3 TIMES A DAY;?
     Route: 048
     Dates: start: 2006
  2. LITHIUM [Suspect]
     Active Substance: LITHIUM
     Indication: Post-traumatic stress disorder

REACTIONS (12)
  - Headache [None]
  - Vision blurred [None]
  - Tinnitus [None]
  - Joint swelling [None]
  - Arthralgia [None]
  - Angiopathy [None]
  - Dry mouth [None]
  - Wheezing [None]
  - Nasal congestion [None]
  - Alopecia [None]
  - Tremor [None]
  - Weight increased [None]
